FAERS Safety Report 21659186 (Version 1)
Quarter: 2022Q4

REPORT INFORMATION
  Report Type: Report from Study
  Country: GB (occurrence: GB)
  Receive Date: 20221129
  Receipt Date: 20221129
  Transmission Date: 20230112
  Serious: Yes (Hospitalization)
  Sender: FDA-Public Use
  Company Number: GB-LEO Pharma-347191

PATIENT
  Age: 90 Year
  Sex: Female

DRUGS (3)
  1. BRODALUMAB [Suspect]
     Active Substance: BRODALUMAB
     Indication: Psoriasis
     Dosage: 210 MG WEEK 0, 1, 2 AND THEN EVERY TWO WEEKS, FOLLOWED BY ONCE A MONTH. (210 MG)
     Route: 058
     Dates: start: 20201110
  2. BRODALUMAB [Suspect]
     Active Substance: BRODALUMAB
     Dosage: DOSAGE: 210 MG WEEK 0, 1, 2 AND THEN EVERY TWO WEEKS, FOLLOWED BY ONCE A MONTH. (210 MG,1 IN 2 WK)
     Route: 058
  3. BRODALUMAB [Suspect]
     Active Substance: BRODALUMAB
     Dosage: DOSAGE: 210 MG WEEK 0, 1, 2 AND THEN EVERY TWO WEEKS, FOLLOWED BY ONCE A MONTH. (210 MG,1 IN 1 M)
     Route: 058

REACTIONS (2)
  - Chest pain [Unknown]
  - Hypertension [Unknown]
